FAERS Safety Report 21171756 (Version 1)
Quarter: 2022Q3

REPORT INFORMATION
  Report Type: Spontaneous
  Country: US (occurrence: US)
  Receive Date: 20220804
  Receipt Date: 20220804
  Transmission Date: 20221026
  Serious: Yes (Other)
  Sender: FDA-Public Use
  Company Number: US-PFIZER INC-202201026452

PATIENT
  Age: 77 Year
  Sex: Male
  Weight: 65.7 kg

DRUGS (2)
  1. PAXLOVID [Interacting]
     Active Substance: NIRMATRELVIR\RITONAVIR
     Indication: COVID-19 treatment
     Dosage: UNK
     Dates: start: 20220729
  2. ISOPROPYL ALCOHOL [Interacting]
     Active Substance: ISOPROPYL ALCOHOL
     Dosage: UNK

REACTIONS (6)
  - Drug interaction [Unknown]
  - Syncope [Unknown]
  - Mastoiditis [Unknown]
  - Fall [Unknown]
  - Somnolence [Unknown]
  - Dizziness [Unknown]

NARRATIVE: CASE EVENT DATE: 20220701
